FAERS Safety Report 9542907 (Version 2)
Quarter: 2013Q4

REPORT INFORMATION
  Report Type: Spontaneous
  Country: CH (occurrence: CH)
  Receive Date: 20130923
  Receipt Date: 20131001
  Transmission Date: 20140711
  Serious: Yes (Other)
  Sender: FDA-Public Use
  Company Number: CH-INCYTE CORPORATION-2013IN002122

PATIENT
  Sex: 0

DRUGS (2)
  1. JAKAVI [Suspect]
     Indication: MYELOFIBROSIS
     Dosage: 5 MG, BID
     Route: 048
     Dates: start: 20130411
  2. PREDNISONE [Concomitant]
     Dosage: UNK
     Dates: start: 20130403, end: 20130421

REACTIONS (1)
  - Retinal vein thrombosis [Unknown]
